FAERS Safety Report 17054425 (Version 2)
Quarter: 2020Q1

REPORT INFORMATION
  Report Type: Report from Study
  Country: JP (occurrence: JP)
  Receive Date: 20191120
  Receipt Date: 20200128
  Transmission Date: 20200409
  Serious: No
  Sender: FDA-Public Use
  Company Number: JP-REGENERON PHARMACEUTICALS, INC.-2019-61983

PATIENT

DRUGS (11)
  1. SANTE DE U PLUS E ALFA [Concomitant]
     Indication: VITREOUS FLOATERS
     Dosage: 1 GTT, AS NECESSARY
     Route: 047
  2. LEVOFLOXACINE                      /01278901/ [Concomitant]
     Active Substance: LEVOFLOXACIN
     Indication: EYE INFLAMMATION
     Dosage: 1 GTT, AS NECESSARY
     Route: 047
     Dates: start: 20190507
  3. SODIUM HYALURONATE [Concomitant]
     Active Substance: HYALURONATE SODIUM
     Indication: EYE INFLAMMATION
     Dosage: 5 GTT, PRN
     Route: 047
     Dates: start: 20190524
  4. ATORVASTATIN CALCIUM TRIHYDRATE [Concomitant]
     Active Substance: ATORVASTATIN CALCIUM
     Indication: HYPERLIPIDAEMIA
     Dosage: 10 MG, QD
     Route: 048
     Dates: start: 20190427
  5. KALLIDINOGENASE [Concomitant]
     Active Substance: KALLIDINOGENASE
     Indication: HYPERTENSION
     Dosage: 150 UNIT, TID
     Route: 048
     Dates: start: 20190524
  6. MECOBALAMIN [Concomitant]
     Active Substance: METHYLCOBALAMIN
     Indication: NUTRITIONAL SUPPLEMENTATION
     Dosage: 1.5 MG, TID
     Route: 048
     Dates: start: 20190524
  7. ADENOSINE TRIPHOSPHATE, DISODIUM SALT [Concomitant]
     Active Substance: ADENOSINE TRIPHOSPHATE DISODIUM
     Indication: NUTRITIONAL SUPPLEMENTATION
     Dosage: 300 MG, TID
     Route: 048
     Dates: start: 20190524
  8. PABRON GOLD A [Concomitant]
     Active Substance: ACETAMINOPHEN\CAFFEINE\CARBINOXAMINE MALEATE\DIHYDROCODEINE PHOSPHATE\GUAIFENESIN\LYSOZYME HYDROCHLORIDE\METHYLEPHEDRINE HYDROCHLORIDE, (+/-)-\RIBOFLAVIN\SULBUTIAMINE
     Indication: NASOPHARYNGITIS
     Dosage: UNK UNK,  PRN
     Route: 048
     Dates: start: 20191005, end: 20191007
  9. OFLOXACIN. [Concomitant]
     Active Substance: OFLOXACIN
     Indication: EYE INFLAMMATION
     Dosage: PRN
     Route: 050
     Dates: start: 20190524
  10. CEMIPLIMAB [Suspect]
     Active Substance: CEMIPLIMAB
     Indication: LUNG ADENOCARCINOMA STAGE IV
     Dosage: 350 MG, Q3W
     Route: 042
     Dates: start: 20190425, end: 20191002
  11. BISOPROLOL FUMARATE. [Concomitant]
     Active Substance: BISOPROLOL FUMARATE
     Indication: HYPERTENSION
     Dosage: 5 MG, QD
     Route: 048
     Dates: start: 2013

REACTIONS (1)
  - Gastrointestinal disorder [Recovering/Resolving]

NARRATIVE: CASE EVENT DATE: 20191023
